FAERS Safety Report 15262288 (Version 2)
Quarter: 2018Q3

REPORT INFORMATION
  Report Type: Spontaneous
  Country: US (occurrence: US)
  Receive Date: 20180809
  Receipt Date: 20180816
  Transmission Date: 20181010
  Serious: Yes (Death, Other)
  Sender: FDA-Public Use
  Company Number: US-GILEAD-2018-0354526

PATIENT
  Age: 47 Year
  Sex: Male

DRUGS (1)
  1. YESCARTA [Suspect]
     Active Substance: AXICABTAGENE CILOLEUCEL
     Indication: DIFFUSE LARGE B-CELL LYMPHOMA
     Dosage: UNK, SINGLE
     Route: 042
     Dates: start: 20180326, end: 20180326

REACTIONS (12)
  - Neurotoxicity [Recovered/Resolved with Sequelae]
  - Tremor [Not Recovered/Not Resolved]
  - Confusional state [Recovered/Resolved]
  - Pyrexia [Recovered/Resolved]
  - Tachycardia [Recovered/Resolved]
  - Staphylococcal sepsis [Fatal]
  - Catheter site infection [Fatal]
  - Shock haemorrhagic [Fatal]
  - Cytokine release syndrome [Recovered/Resolved]
  - Encephalopathy [Recovered/Resolved]
  - Hallucination [Recovered/Resolved]
  - Peritoneal haemorrhage [Fatal]

NARRATIVE: CASE EVENT DATE: 20180328
